FAERS Safety Report 14186434 (Version 2)
Quarter: 2018Q1

REPORT INFORMATION
  Report Type: Spontaneous
  Country: ES (occurrence: ES)
  Receive Date: 20171114
  Receipt Date: 20180307
  Transmission Date: 20180508
  Serious: Yes (Other)
  Sender: FDA-Public Use
  Company Number: ES-AMGEN-ESPSP2017168606

PATIENT
  Age: 63 Year
  Sex: Female

DRUGS (4)
  1. CALCIUM [Concomitant]
     Active Substance: CALCIUM
  2. HIDROFEROL CHOQUE [Concomitant]
     Dosage: 3 MG, QMO
     Dates: end: 2013
  3. PROLIA [Suspect]
     Active Substance: DENOSUMAB
     Indication: PRODUCT USED FOR UNKNOWN INDICATION
     Dosage: UNK
     Route: 065
     Dates: start: 201201, end: 2013
  4. VITAMIN D [Concomitant]
     Active Substance: CHOLECALCIFEROL
     Dosage: 180000 IU, QMO
     Dates: end: 2013

REACTIONS (3)
  - Spinal fracture [Unknown]
  - Inguinal hernia repair [Unknown]
  - Vitamin D increased [Recovering/Resolving]

NARRATIVE: CASE EVENT DATE: 2013
